FAERS Safety Report 23507714 (Version 1)
Quarter: 2024Q1

REPORT INFORMATION
  Report Type: Spontaneous
  Country: CA (occurrence: CA)
  Receive Date: 20240209
  Receipt Date: 20240209
  Transmission Date: 20240410
  Serious: Yes (Other)
  Sender: FDA-Public Use
  Company Number: CA-PFIZER INC-202300445350

PATIENT
  Age: 59 Year
  Sex: Male

DRUGS (1)
  1. RUXIENCE [Suspect]
     Active Substance: RITUXIMAB-PVVR
     Indication: Glomerulonephritis membranous
     Dosage: 1000 MG, EVERY 2 WEEK(FOR 2 DOSES)(1000 MG, FIRST TREATMENT)
     Route: 042
     Dates: start: 20240206

REACTIONS (6)
  - Hot flush [Recovered/Resolved]
  - Pruritus [Recovered/Resolved]
  - Rhinorrhoea [Recovered/Resolved]
  - Dry throat [Recovered/Resolved]
  - Erythema [Recovered/Resolved]
  - Off label use [Unknown]

NARRATIVE: CASE EVENT DATE: 20240206
